FAERS Safety Report 5303513-3 (Version None)
Quarter: 2007Q2

REPORT INFORMATION
  Report Type: 
  Country: None (occurrence: None)
  Receive Date: 20070420
  Receipt Date: 20070411
  Transmission Date: 20071010
  Serious: Yes (Other)
  Sender: FDA-Public Use
  Company Number: BR-PFIZER INC-2007030017

PATIENT
  Sex: Male

DRUGS (3)
  1. LIPITOR [Suspect]
     Indication: BLOOD CHOLESTEROL INCREASED
     Route: 048
  2. AAS [Concomitant]
     Route: 048
  3. ENALAPRIL [Concomitant]
     Dates: start: 20061101

REACTIONS (2)
  - CARDIAC OPERATION [None]
  - VASCULAR OPERATION [None]
